FAERS Safety Report 5347145-X (Version None)
Quarter: 2007Q2

REPORT INFORMATION
  Report Type: 
  Country: None (occurrence: None)
  Receive Date: 20070509
  Receipt Date: 20070123
  Transmission Date: 20071010
  Serious: Yes (Other)
  Sender: FDA-Public Use
  Company Number: HQWYE358124JAN07

PATIENT
  Age: 68 Year
  Sex: Female
  Weight: 62.65 kg

DRUGS (8)
  1. PROTONIX [Suspect]
     Indication: GASTROOESOPHAGEAL REFLUX DISEASE
     Dosage: 80 MG 3X PER 1 DAY, INTRAVENOUS
     Route: 042
     Dates: start: 20061230, end: 20070124
  2. CATAPRES [Concomitant]
  3. DIFLUCAN [Concomitant]
  4. LANTUS [Concomitant]
  5. ZOFRAN [Concomitant]
  6. TYGACIL [Concomitant]
  7. MORPHINE [Concomitant]
  8. VALIUM [Concomitant]

REACTIONS (1)
  - PANCYTOPENIA [None]
